FAERS Safety Report 21158294 (Version 1)
Quarter: 2022Q3

REPORT INFORMATION
  Report Type: Spontaneous
  Country: US (occurrence: US)
  Receive Date: 20220801
  Receipt Date: 20220801
  Transmission Date: 20221027
  Serious: Yes (Other)
  Sender: FDA-Public Use
  Company Number: US-PFIZER INC-202201017458

PATIENT
  Age: 88 Year
  Sex: Female
  Weight: 52.16 kg

DRUGS (1)
  1. XELJANZ XR [Suspect]
     Active Substance: TOFACITINIB CITRATE
     Indication: Arthritis
     Dosage: 11 MG, 1X/DAY, [11MG WITH WATER ONCE A DAY]
     Dates: start: 2021

REACTIONS (4)
  - Shoulder operation [Unknown]
  - Pain [Recovering/Resolving]
  - Sleep disorder [Unknown]
  - Pruritus [Not Recovered/Not Resolved]

NARRATIVE: CASE EVENT DATE: 20220101
